FAERS Safety Report 5657489-X (Version None)
Quarter: 2008Q1

REPORT INFORMATION
  Report Type: 
  Country: None (occurrence: None)
  Receive Date: 20080310
  Receipt Date: 20080227
  Transmission Date: 20080703
  Serious: Yes (Hospitalization, Other)
  Sender: FDA-Public Use
  Company Number: GB-PFIZER INC-2008018788

PATIENT
  Age: 43 Year
  Sex: Male

DRUGS (2)
  1. HEPARIN SODIUM [Suspect]
     Indication: ARTERIAL THROMBOSIS LIMB
     Route: 042
  2. ACTIVASE [Suspect]
     Indication: ARTERIAL THROMBOSIS LIMB

REACTIONS (3)
  - DRUG EFFECT DECREASED [None]
  - EXTREMITY NECROSIS [None]
  - FINGER AMPUTATION [None]
